FAERS Safety Report 8319748-1 (Version None)
Quarter: 2012Q1

REPORT INFORMATION
  Report Type: 
  Country: None (occurrence: None)
  Receive Date: 20120315
  Receipt Date: 20110427
  Transmission Date: 20120608
  Serious: Yes (Other)
  Sender: FDA-Public Use
  Company Number: PHHY2011US07876

PATIENT
  Age: 52 Year
  Sex: Female

DRUGS (5)
  1. GILENYA [Suspect]
     Indication: MULTIPLE SCLEROSIS
     Dosage: 0.5 MG, QD, ORAL
     Route: 048
     Dates: start: 20110121
  2. BETASERON [Concomitant]
  3. ANTIVERT (MECLOZINE HYDROCHLORIDE) TABLET [Concomitant]
  4. LIORESAL [Concomitant]
  5. NUVIGIL [Concomitant]

REACTIONS (27)
  - BLOOD ALBUMIN DECREASED [None]
  - SINUSITIS [None]
  - DECREASED APPETITE [None]
  - MYALGIA [None]
  - ASTHENIA [None]
  - BLOOD GLUCOSE DECREASED [None]
  - ABDOMINAL DISCOMFORT [None]
  - DIARRHOEA [None]
  - CHILLS [None]
  - BLOOD ALKALINE PHOSPHATASE INCREASED [None]
  - EOSINOPHIL COUNT DECREASED [None]
  - RED CELL DISTRIBUTION WIDTH DECREASED [None]
  - HAEMOGLOBIN DECREASED [None]
  - BLOOD CALCIUM DECREASED [None]
  - LYMPHOCYTE COUNT DECREASED [None]
  - INFLUENZA LIKE ILLNESS [None]
  - RED BLOOD CELL COUNT DECREASED [None]
  - BLOOD SODIUM DECREASED [None]
  - PYREXIA [None]
  - PAIN [None]
  - FEELING ABNORMAL [None]
  - WHITE BLOOD CELL COUNT DECREASED [None]
  - AMYLASE DECREASED [None]
  - HYPERHIDROSIS [None]
  - HAEMATOCRIT DECREASED [None]
  - RED CELL DISTRIBUTION WIDTH INCREASED [None]
  - MEAN CELL HAEMOGLOBIN DECREASED [None]
